FAERS Safety Report 7816261-2 (Version None)
Quarter: 2011Q4

REPORT INFORMATION
  Report Type: 
  Country: None (occurrence: None)
  Receive Date: 20111016
  Receipt Date: 20111003
  Transmission Date: 20120403
  Serious: Yes (Death, Other)
  Sender: FDA-Public Use
  Company Number: HK-ROCHE-1001702

PATIENT

DRUGS (2)
  1. IRINOTECAN HCL [Suspect]
     Indication: MALIGNANT GLIOMA
     Route: 042
  2. AVASTIN [Suspect]
     Indication: MALIGNANT GLIOMA
     Route: 042

REACTIONS (4)
  - PULMONARY EMBOLISM [None]
  - HYPERTENSION [None]
  - BLOOD DISORDER [None]
  - PROTEINURIA [None]
